FAERS Safety Report 8874031 (Version 1)
Quarter: 2012Q4

REPORT INFORMATION
  Report Type: 
  Country: US (occurrence: US)
  Receive Date: 20121030
  Receipt Date: 20121030
  Transmission Date: 20130627
  Serious: Yes (Other)
  Sender: FDA-Public Use
  Company Number: CHPA2012US022198

PATIENT
  Age: 71 Year
  Sex: Female

DRUGS (6)
  1. TRIAMINIC COLD AND ALLERGY [Suspect]
     Indication: NASOPHARYNGITIS
     Dosage: 1 tsp three times daily, as needed
     Route: 048
     Dates: start: 1967
  2. VITAMIN B12 [Concomitant]
     Dosage: 25-20 mg, twice per week
  3. VITAMIN A [Concomitant]
     Dosage: 99 mg daily
  4. COD-LIVER OIL [Concomitant]
     Dosage: 1 gelcap daily
     Dates: start: 1941
  5. VITAMIN C [Concomitant]
     Dosage: 1 gelcap, once per week
  6. COQ10 [Concomitant]
     Dosage: 100 mg daily

REACTIONS (9)
  - Breast cancer [Recovered/Resolved]
  - Pneumonia [Recovered/Resolved]
  - Hypertension [Not Recovered/Not Resolved]
  - Oedema peripheral [Not Recovered/Not Resolved]
  - Lymphoedema [Not Recovered/Not Resolved]
  - Eating disorder [Recovered/Resolved]
  - Insomnia [Recovered/Resolved]
  - Incorrect dose administered [Unknown]
  - Incorrect drug administration duration [Unknown]
